FAERS Safety Report 10671680 (Version 1)
Quarter: 2014Q4

REPORT INFORMATION
  Report Type: Spontaneous
  Country: US (occurrence: US)
  Receive Date: 20141223
  Receipt Date: 20141223
  Transmission Date: 20150529
  Serious: Yes (Other)
  Sender: FDA-Public Use
  Company Number: US-BAYER-2014-188292

PATIENT
  Age: 32 Year
  Sex: Female

DRUGS (2)
  1. MIRENA [Suspect]
     Active Substance: LEVONORGESTREL
     Indication: HORMONE LEVEL ABNORMAL
  2. MIRENA [Suspect]
     Active Substance: LEVONORGESTREL
     Indication: ACNE
     Dosage: 20 ?G, CONT
     Route: 015
     Dates: start: 20140623, end: 20141130

REACTIONS (3)
  - Device expulsion [None]
  - Off label use [None]
  - Menorrhagia [None]

NARRATIVE: CASE EVENT DATE: 20141130
